FAERS Safety Report 24614755 (Version 1)
Quarter: 2024Q4

REPORT INFORMATION
  Report Type: Spontaneous
  Country: US (occurrence: US)
  Receive Date: 20241113
  Receipt Date: 20241113
  Transmission Date: 20250115
  Serious: Yes (Hospitalization)
  Sender: AMGEN
  Company Number: US-AMGEN-USASP2024220442

PATIENT
  Age: 42 Year
  Sex: Male

DRUGS (2)
  1. PREDNISONE [Suspect]
     Active Substance: PREDNISONE
     Indication: Sarcoidosis
     Dosage: 80 MILLIGRAM, QD
     Route: 048
  2. PREDNISONE [Suspect]
     Active Substance: PREDNISONE
     Dosage: 40 MILLIGRAM, QD (TAPERED)
     Route: 048

REACTIONS (6)
  - Sepsis [Not Recovered/Not Resolved]
  - Enterobacter infection [Not Recovered/Not Resolved]
  - Disseminated cryptococcosis [Not Recovered/Not Resolved]
  - Postoperative abscess [Unknown]
  - Cellulitis [Unknown]
  - Necrotising fasciitis fungal [Unknown]
